FAERS Safety Report 7015622-1 (Version None)
Quarter: 2010Q3

REPORT INFORMATION
  Report Type: 
  Country: None (occurrence: None)
  Receive Date: 20100927
  Receipt Date: 20100921
  Transmission Date: 20110219
  Serious: Yes (Death, Hospitalization)
  Sender: FDA-Public Use
  Company Number: GB-BRISTOL-MYERS SQUIBB COMPANY-15273824

PATIENT
  Age: 64 Year
  Sex: Male

DRUGS (3)
  1. CETUXIMAB [Suspect]
     Indication: OESOPHAGEAL CARCINOMA
     Dosage: INTERRUPTED ON 06SEP2010 450MG RECENT INF:16AUG10
     Route: 041
     Dates: start: 20100621, end: 20100816
  2. CISPLATIN [Suspect]
     Indication: OESOPHAGEAL CARCINOMA
     Dosage: INTERRUPTED ON 23AUG10 RECENT INF:02AUG10
     Route: 041
     Dates: start: 20100621, end: 20100802
  3. CAPECITABINE [Suspect]
     Indication: OESOPHAGEAL CARCINOMA
     Dosage: INTERRUPTED ON 12SEP10 RECENT INF:19AUG10
     Route: 048
     Dates: start: 20100621, end: 20100819

REACTIONS (2)
  - MULTI-ORGAN FAILURE [None]
  - PULMONARY EMBOLISM [None]
